FAERS Safety Report 9516071 (Version 2)
Quarter: 2013Q3

REPORT INFORMATION
  Report Type: Spontaneous
  Country: FR (occurrence: None)
  Receive Date: 20130909
  Receipt Date: 20130923
  Transmission Date: 20140515
  Serious: Yes (Hospitalization)
  Sender: FDA-Public Use
  Company Number: 2013CP000108

PATIENT
  Age: 70 Year
  Sex: Female

DRUGS (8)
  1. PERFALGAN [Suspect]
     Indication: PRODUCT USED FOR UNKNOWN INDICATION
     Route: 042
     Dates: start: 20100525
  2. CEFAMANDOLE [Suspect]
     Indication: PRODUCT USED FOR UNKNOWN INDICATION
     Dates: start: 20100525
  3. PROPOFOL [Concomitant]
  4. ROCURONIUM [Concomitant]
  5. EPHEDRINE [Concomitant]
  6. ATROPINE [Concomitant]
  7. SUFENTANIL [Concomitant]
  8. KETAMINE [Concomitant]

REACTIONS (2)
  - Eosinophilic pneumonia [None]
  - Alveolitis allergic [None]
